FAERS Safety Report 20022940 (Version 1)
Quarter: 2021Q4

REPORT INFORMATION
  Report Type: Spontaneous
  Country: US (occurrence: US)
  Receive Date: 20211102
  Receipt Date: 20211102
  Transmission Date: 20220303
  Serious: No
  Sender: FDA-Public Use
  Company Number: US-SA-SAC20211027001623

PATIENT
  Age: 7 Year
  Sex: Female

DRUGS (6)
  1. DUPIXENT [Suspect]
     Active Substance: DUPILUMAB
     Indication: Dermatitis atopic
     Dosage: 600 MG, 1X
     Route: 058
     Dates: start: 20211011, end: 20211011
  2. TACROLIMUS [Concomitant]
     Active Substance: TACROLIMUS
  3. HYDROCORTISONE [Concomitant]
     Active Substance: HYDROCORTISONE
  4. HYDROXYZINE HYDROCHLORIDE [Concomitant]
     Active Substance: HYDROXYZINE HYDROCHLORIDE
  5. MOMETASONE FUROATE [Concomitant]
     Active Substance: MOMETASONE FUROATE
  6. TRIAMCINOLONE ACETONIDE [Concomitant]
     Active Substance: TRIAMCINOLONE ACETONIDE

REACTIONS (3)
  - Skin exfoliation [Unknown]
  - Dry skin [Unknown]
  - Skin discolouration [Unknown]

NARRATIVE: CASE EVENT DATE: 20211001
